FAERS Safety Report 8433419 (Version 2)
Quarter: 2012Q4

REPORT INFORMATION
  Report Type: 
  Country: GB (occurrence: GB)
  Receive Date: 20120229
  Receipt Date: 20120920
  Transmission Date: 20130627
  Serious: Yes (Other)
  Sender: FDA-Public Use
  Company Number: GB-PFIZER INC-2012049018

PATIENT
  Age: 37 Year
  Sex: Female

DRUGS (10)
  1. VENLAFAXINE HYDROCHLORIDE [Suspect]
     Indication: ANXIETY
     Dosage: 150 mg, UNK
     Route: 048
     Dates: start: 201105, end: 201111
  2. VENLAFAXINE HYDROCHLORIDE [Suspect]
     Indication: DEPRESSION
  3. VENLAFAXINE HYDROCHLORIDE [Suspect]
     Indication: PAIN
  4. FENTANYL [Concomitant]
     Indication: PAIN
     Dosage: 25 ug, UNK
     Route: 062
  5. OXYNORM [Concomitant]
     Indication: PAIN
     Route: 048
  6. OXYCONTIN [Concomitant]
     Indication: PAIN
     Route: 048
  7. LYRICA [Concomitant]
     Indication: PAIN
     Dosage: 600 mg, UNK
     Route: 048
  8. INDOMETHACIN [Concomitant]
     Indication: PAIN
     Route: 048
  9. ONDANSETRON [Concomitant]
     Indication: PAIN
     Route: 048
  10. CYCLIZINE [Concomitant]
     Indication: PAIN
     Route: 048

REACTIONS (5)
  - Type 1 diabetes mellitus [Not Recovered/Not Resolved]
  - Dry mouth [Not Recovered/Not Resolved]
  - Oral pain [Not Recovered/Not Resolved]
  - Balance disorder [Not Recovered/Not Resolved]
  - Diplopia [Not Recovered/Not Resolved]
